FAERS Safety Report 19508498 (Version 1)
Quarter: 2021Q3

REPORT INFORMATION
  Report Type: Spontaneous
  Country: AU (occurrence: AU)
  Receive Date: 20210709
  Receipt Date: 20210709
  Transmission Date: 20211014
  Serious: Yes (Other)
  Sender: FDA-Public Use
  Company Number: AU-ABBVIE-21K-008-3983813-00

PATIENT
  Age: 46 Year
  Sex: Female

DRUGS (2)
  1. IMBRUVICA [Suspect]
     Active Substance: IBRUTINIB
     Indication: MANTLE CELL LYMPHOMA
     Route: 048
     Dates: start: 2017
  2. ALLOPURINOL. [Suspect]
     Active Substance: ALLOPURINOL
     Indication: MANTLE CELL LYMPHOMA
     Route: 065

REACTIONS (3)
  - Lymphocyte count abnormal [Unknown]
  - White blood cell count abnormal [Unknown]
  - T-lymphocyte count abnormal [Unknown]
